FAERS Safety Report 8758418 (Version 2)
Quarter: 2012Q4

REPORT INFORMATION
  Report Type: 
  Country: US (occurrence: US)
  Receive Date: 20120823
  Receipt Date: 20121001
  Transmission Date: 20130627
  Serious: Yes (Hospitalization)
  Sender: FDA-Public Use
  Company Number: US-ELI_LILLY_AND_COMPANY-US201208006302

PATIENT
  Sex: Male
  Weight: 45.81 kg

DRUGS (1)
  1. FORTEO [Suspect]
     Indication: OSTEOPOROSIS
     Dosage: UNK, unknown
     Route: 058
     Dates: start: 20120717

REACTIONS (2)
  - Clostridium difficile infection [Recovered/Resolved]
  - Dehydration [Recovered/Resolved]
